FAERS Safety Report 10264228 (Version 1)
Quarter: 2014Q2

REPORT INFORMATION
  Report Type: Spontaneous
  Country: None (occurrence: None)
  Receive Date: 20140624
  Receipt Date: 20140624
  Transmission Date: 20141212
  Serious: Yes (Other)
  Sender: FDA-Public Use
  Company Number: 2014060065

PATIENT
  Age: 27 Year
  Sex: Male
  Weight: 72 kg

DRUGS (3)
  1. AFLUON [Suspect]
     Indication: NASAL CONGESTION
     Dosage: 3 DOSAGE FORMS (1 DOSAGE FORMS,3 IN 1 D)
     Route: 045
     Dates: start: 20140501, end: 20140511
  2. LORATADINA [Suspect]
     Indication: HYPERSENSITIVITY
     Route: 048
     Dates: start: 20140501, end: 20140509
  3. SYMBICORT TURBUHALER [Suspect]
     Indication: RESPIRATORY DISORDER
     Dosage: 2 DOSAGE FORMS (1 DOSAGE FORMS, 2 IN 1 D)
     Route: 055
     Dates: start: 20140509, end: 20140513

REACTIONS (5)
  - Asthmatic crisis [None]
  - Dizziness [None]
  - Somnolence [None]
  - Coordination abnormal [None]
  - Feeling abnormal [None]
